FAERS Safety Report 8350947-9 (Version None)
Quarter: 2012Q2

REPORT INFORMATION
  Report Type: 
  Country: None (occurrence: None)
  Receive Date: 20120510
  Receipt Date: 20120425
  Transmission Date: 20120825
  Serious: Yes (Hospitalization)
  Sender: FDA-Public Use
  Company Number: US-ELI_LILLY_AND_COMPANY-US201204009188

PATIENT
  Age: 18 Year
  Sex: Male

DRUGS (6)
  1. LEXAPRO [Concomitant]
     Dosage: 50 MG, QD
  2. ADDERALL 5 [Concomitant]
  3. STRATTERA [Suspect]
     Indication: ATTENTION DEFICIT/HYPERACTIVITY DISORDER
     Dosage: 25 MG, QD
  4. STRATTERA [Suspect]
     Dosage: 50 MG, QD
  5. STRATTERA [Suspect]
     Dosage: 75 MG, QD
  6. STRATTERA [Suspect]
     Dosage: 80 MG, QD

REACTIONS (6)
  - DEPRESSION SUICIDAL [None]
  - AGGRESSION [None]
  - ANGER [None]
  - DRUG INEFFECTIVE [None]
  - HAND FRACTURE [None]
  - CRYING [None]
